FAERS Safety Report 22863417 (Version 6)
Quarter: 2024Q1

REPORT INFORMATION
  Report Type: Spontaneous
  Country: US (occurrence: US)
  Receive Date: 20230824
  Receipt Date: 20240208
  Transmission Date: 20240410
  Serious: Yes (Other)
  Sender: FDA-Public Use
  Company Number: US-BRISTOL-MYERS SQUIBB COMPANY-2023-119168

PATIENT
  Age: 83 Year
  Sex: Female

DRUGS (3)
  1. LENALIDOMIDE [Suspect]
     Active Substance: LENALIDOMIDE
     Indication: Plasma cell myeloma
     Route: 048
  2. LENALIDOMIDE [Suspect]
     Active Substance: LENALIDOMIDE
     Indication: Chemotherapy
     Dates: end: 20230819
  3. LENALIDOMIDE [Suspect]
     Active Substance: LENALIDOMIDE
     Dosage: TAKE 1 CAPSULE BY MOUTH EVERY OTHER DAY
     Route: 048
     Dates: start: 20230728

REACTIONS (16)
  - White blood cell count decreased [Not Recovered/Not Resolved]
  - Illness [Recovering/Resolving]
  - Off label use [Unknown]
  - Neutrophil count decreased [Unknown]
  - Dyspepsia [Unknown]
  - Back pain [Unknown]
  - Abdominal pain upper [Unknown]
  - Cancer fatigue [Unknown]
  - Nausea [Recovering/Resolving]
  - Constipation [Unknown]
  - Diarrhoea [Unknown]
  - Depression [Unknown]
  - Head injury [Unknown]
  - Decreased appetite [Recovering/Resolving]
  - Urinary tract infection [Unknown]
  - Loss of consciousness [Unknown]
